FAERS Safety Report 8388563-5 (Version None)
Quarter: 2012Q2

REPORT INFORMATION
  Report Type: 
  Country: None (occurrence: None)
  Receive Date: 20120525
  Receipt Date: 20120518
  Transmission Date: 20120825
  Serious: Yes (Hospitalization)
  Sender: FDA-Public Use
  Company Number: NL-MEDIMMUNE-MEDI-0014014

PATIENT
  Age: 4 Month
  Sex: Male
  Weight: 4.1 kg

DRUGS (6)
  1. SYNAGIS [Suspect]
     Route: 030
     Dates: start: 20120213, end: 20120213
  2. SYNAGIS [Suspect]
     Route: 030
     Dates: start: 20120411, end: 20120411
  3. SYNAGIS [Suspect]
     Route: 030
     Dates: start: 20111025, end: 20111025
  4. SYNAGIS [Suspect]
     Route: 030
     Dates: start: 20120117, end: 20120117
  5. SYNAGIS [Suspect]
     Indication: PREMATURE BABY
     Route: 030
     Dates: start: 20110901, end: 20110901
  6. SYNAGIS [Suspect]
     Route: 030
     Dates: start: 20111122, end: 20111122

REACTIONS (4)
  - MALNUTRITION [None]
  - FEEDING DISORDER OF INFANCY OR EARLY CHILDHOOD [None]
  - DECREASED APPETITE [None]
  - DEHYDRATION [None]
